FAERS Safety Report 10181601 (Version 1)
Quarter: 2014Q2

REPORT INFORMATION
  Report Type: Spontaneous
  Country: CN (occurrence: CN)
  Receive Date: 20140519
  Receipt Date: 20140519
  Transmission Date: 20141212
  Serious: Yes (Hospitalization, Other)
  Sender: FDA-Public Use
  Company Number: CN-PFIZER INC-2014134281

PATIENT
  Age: 64 Year
  Sex: Male
  Weight: 60 kg

DRUGS (4)
  1. PHARMORUBICIN [Suspect]
     Indication: HODGKIN^S DISEASE
     Dosage: 60 MG, ONCE EVERY 7 DAYS
     Route: 042
     Dates: start: 20121025, end: 20121203
  2. BLEOMYCIN [Suspect]
     Indication: HODGKIN^S DISEASE
     Dosage: 15 MG, ONCE EVERY 7 DAYS
     Route: 042
     Dates: start: 20121025, end: 20121203
  3. VINCRISTINE SULFATE [Suspect]
     Indication: HODGKIN^S DISEASE
     Dosage: 2 MG, ONCE EVERY 7 DAYS
     Route: 042
     Dates: start: 20121025, end: 20121203
  4. DACARBAZINE [Suspect]
     Indication: HODGKIN^S DISEASE
     Dosage: 500 MG, ONCE EVERY 7 DAYS
     Route: 042
     Dates: start: 20121025, end: 20121203

REACTIONS (1)
  - Hepatic function abnormal [Recovering/Resolving]
